FAERS Safety Report 11755662 (Version 3)
Quarter: 2016Q3

REPORT INFORMATION
  Report Type: Spontaneous
  Country: US (occurrence: US)
  Receive Date: 20151119
  Receipt Date: 20160908
  Transmission Date: 20161109
  Serious: Yes (Hospitalization, Other)
  Sender: FDA-Public Use
  Company Number: US-ASTRAZENECA-2015SF11432

PATIENT
  Age: 68 Year
  Sex: Male
  Weight: 72.6 kg

DRUGS (12)
  1. SYMBICORT [Suspect]
     Active Substance: BUDESONIDE\FORMOTEROL FUMARATE DIHYDRATE
     Indication: PNEUMONIA
     Dosage: 160/4.5, 2 PUFFS TWICE A DAY
     Route: 055
     Dates: start: 201511, end: 201511
  2. ALBUTEROL. [Concomitant]
     Active Substance: ALBUTEROL
     Dosage: AS NEEDED
  3. TUDORZA PRESSAIR [Suspect]
     Active Substance: ACLIDINIUM BROMIDE
     Indication: CHRONIC OBSTRUCTIVE PULMONARY DISEASE
     Route: 055
     Dates: start: 20151109
  4. TUDORZA PRESSAIR [Suspect]
     Active Substance: ACLIDINIUM BROMIDE
     Indication: PNEUMONIA
     Route: 055
     Dates: start: 20151109
  5. GENERIC NEXIUM [Suspect]
     Active Substance: ESOMEPRAZOLE MAGNESIUM
     Indication: GASTROOESOPHAGEAL REFLUX DISEASE
     Route: 048
  6. HOME OXYGEN [Concomitant]
     Dates: start: 201402
  7. ALBUTEROL. [Concomitant]
     Active Substance: ALBUTEROL
     Dosage: TWO TIMES A DAY
  8. SYMBICORT [Suspect]
     Active Substance: BUDESONIDE\FORMOTEROL FUMARATE DIHYDRATE
     Indication: CHRONIC OBSTRUCTIVE PULMONARY DISEASE
     Dosage: 160/4.5, 2 PUFFS TWICE A DAY
     Route: 055
     Dates: start: 201511, end: 201511
  9. ASPIRIN. [Concomitant]
     Active Substance: ASPIRIN
     Indication: ILL-DEFINED DISORDER
     Route: 048
  10. VALIUM [Concomitant]
     Active Substance: DIAZEPAM
     Indication: ANXIETY
     Route: 048
  11. ALBUTEROL. [Concomitant]
     Active Substance: ALBUTEROL
     Dosage: TWO TIMES A DAY
  12. NORVASC [Concomitant]
     Active Substance: AMLODIPINE BESYLATE
     Indication: HYPERTENSION
     Dates: start: 2014

REACTIONS (17)
  - Bronchitis [Unknown]
  - Product use issue [Unknown]
  - Anxiety [Unknown]
  - Hypertension [Unknown]
  - Cataract [Unknown]
  - Dyspnoea [Unknown]
  - Malaise [Unknown]
  - Adverse drug reaction [Unknown]
  - Pneumonia [Unknown]
  - Tendon rupture [Unknown]
  - Cough [Recovered/Resolved]
  - Product quality issue [Unknown]
  - Heart rate increased [Unknown]
  - Oxygen saturation decreased [Unknown]
  - Laryngeal cancer [Unknown]
  - Insomnia [Recovered/Resolved]
  - Drug dose omission [Unknown]

NARRATIVE: CASE EVENT DATE: 2009
